FAERS Safety Report 14975782 (Version 1)
Quarter: 2018Q2

REPORT INFORMATION
  Report Type: Spontaneous
  Country: US (occurrence: US)
  Receive Date: 20180605
  Receipt Date: 20180605
  Transmission Date: 20180711
  Serious: No
  Sender: FDA-Public Use
  Company Number: US-ROCHE-1999736

PATIENT
  Age: 67 Year
  Sex: Male

DRUGS (2)
  1. ACTEMRA [Suspect]
     Active Substance: TOCILIZUMAB
     Indication: RHEUMATOID ARTHRITIS
     Dosage: 80MG/4ML
     Route: 042
     Dates: start: 20170829
  2. ACTEMRA [Suspect]
     Active Substance: TOCILIZUMAB
     Indication: ILL-DEFINED DISORDER

REACTIONS (2)
  - Drug ineffective [Unknown]
  - Blister [Unknown]

NARRATIVE: CASE EVENT DATE: 20170922
